FAERS Safety Report 14988586 (Version 1)
Quarter: 2018Q2

REPORT INFORMATION
  Report Type: Spontaneous
  Country: US (occurrence: US)
  Receive Date: 20180516
  Receipt Date: 20180516
  Transmission Date: 20180711
  Serious: Yes (Hospitalization)
  Sender: FDA-Public Use
  Company Number: None

PATIENT
  Age: 54 Year
  Sex: Female
  Weight: 63 kg

DRUGS (5)
  1. CARBOPLATIN 10 MG/ML 60 ML VIAL TEVA [Suspect]
     Active Substance: CARBOPLATIN
     Dates: start: 20180418
  2. CARBOPLATIN 10 MG/ML 60 ML VIAL TEVA [Suspect]
     Active Substance: CARBOPLATIN
     Dates: start: 20180509
  3. CARBOPLATIN 10 MG/ML 60 ML VIAL TEVA [Suspect]
     Active Substance: CARBOPLATIN
     Route: 042
     Dates: start: 20180214
  4. CARBOPLATIN 10 MG/ML 60 ML VIAL TEVA [Suspect]
     Active Substance: CARBOPLATIN
     Dates: start: 20180307
  5. CARBOPLATIN 10 MG/ML 60 ML VIAL TEVA [Suspect]
     Active Substance: CARBOPLATIN
     Dates: start: 20180328

REACTIONS (5)
  - Pruritus [None]
  - Infusion related reaction [None]
  - Urticaria [None]
  - Dry mouth [None]
  - Feeling hot [None]

NARRATIVE: CASE EVENT DATE: 20180509
